FAERS Safety Report 4929568-3 (Version None)
Quarter: 2006Q1

REPORT INFORMATION
  Report Type: 
  Country: None (occurrence: None)
  Receive Date: 20060223
  Receipt Date: 20060216
  Transmission Date: 20060701
  Serious: Yes (Hospitalization)
  Sender: FDA-Public Use
  Company Number: STA-AE-06-006

PATIENT
  Age: 30 Year
  Sex: Female

DRUGS (3)
  1. LORAZEPAM [Suspect]
     Indication: SEDATIVE THERAPY
     Dosage: 3068MG IV DURING HOSPITAL
  2. GENTAMICIN [Suspect]
     Indication: ENDOCARDITIS
  3. NAFCILLIN [Concomitant]

REACTIONS (6)
  - ANION GAP INCREASED [None]
  - BLOOD LACTIC ACID DECREASED [None]
  - BLOOD OSMOLARITY INCREASED [None]
  - DRUG TOXICITY [None]
  - HAEMODIALYSIS [None]
  - RENAL FAILURE ACUTE [None]
